FAERS Safety Report 8893033 (Version 3)
Quarter: 2013Q1

REPORT INFORMATION
  Report Type: Spontaneous
  Country: US (occurrence: None)
  Receive Date: 20121101
  Receipt Date: 20130228
  Transmission Date: 20140127
  Serious: Yes (Hospitalization, Disabling, Other)
  Sender: FDA-Public Use
  Company Number: 1463395

PATIENT
  Sex: Female

DRUGS (2)
  1. BUPIVACAINE HCL [Suspect]
     Indication: ANAESTHESIA
     Dosage: 4 SHOTS, INTRADISCAL (INTRASPINAL)
     Dates: start: 20120907
  2. LIDOCAINE [Suspect]
     Dosage: 2 SHOTS, TOPICAL
     Route: 061
     Dates: start: 20120907

REACTIONS (7)
  - Gait disturbance [None]
  - Convulsion [None]
  - Hypoaesthesia [None]
  - Pruritus [None]
  - Nervous system disorder [None]
  - Swelling [None]
  - Hypoaesthesia [None]
